FAERS Safety Report 9968362 (Version 1)
Quarter: 2014Q1

REPORT INFORMATION
  Report Type: Report from Study
  Country: US (occurrence: US)
  Receive Date: 20140306
  Receipt Date: 20140306
  Transmission Date: 20141002
  Serious: No
  Sender: FDA-Public Use
  Company Number: US-ABBVIE-13P-163-1140536-00

PATIENT
  Age: 50 Year
  Sex: Female

DRUGS (16)
  1. HUMIRA [Suspect]
     Indication: COLITIS ULCERATIVE
     Dates: start: 20130617
  2. COUMADIN [Concomitant]
     Indication: ANTICOAGULANT THERAPY
     Dosage: ALTERNATING EVERY OTHER DAY 5 MG + 7.5
  3. COUMADIN [Concomitant]
  4. TEMAZEPAM [Concomitant]
     Indication: INSOMNIA
     Dosage: AT BEDTIME
  5. AMITRIPTYLINE [Concomitant]
     Indication: DEPRESSION
  6. LEXAPRO [Concomitant]
     Indication: DEPRESSION
     Dosage: AT BEDTIME
  7. ZANAFLEX [Concomitant]
     Indication: MUSCLE RELAXANT THERAPY
  8. OXYCODONE [Concomitant]
     Indication: PAIN
     Dosage: 10-325 MG UP TO 4 A DAY
  9. TOPAMAX [Concomitant]
     Indication: MIGRAINE
  10. PRILOSEC [Concomitant]
     Indication: GASTROOESOPHAGEAL REFLUX DISEASE
  11. GABAPENTIN [Concomitant]
     Indication: NEUROPATHY PERIPHERAL
  12. GABAPENTIN [Concomitant]
     Indication: FIBROMYALGIA
  13. XANAX [Concomitant]
     Indication: ANXIETY
     Dosage: AS NEEDED
  14. ZOVIRAX [Concomitant]
     Indication: HERPES ZOSTER
     Dosage: 400 MG 2-5 TIMES A DAY AS NEEDED
  15. STEROID [Concomitant]
     Indication: INJECTION
  16. BOTOX [Concomitant]
     Indication: INJECTION

REACTIONS (13)
  - Skin lesion [Unknown]
  - Headache [Not Recovered/Not Resolved]
  - Migraine [Not Recovered/Not Resolved]
  - Upper respiratory tract infection [Not Recovered/Not Resolved]
  - Sinusitis [Not Recovered/Not Resolved]
  - Fungal infection [Not Recovered/Not Resolved]
  - International normalised ratio increased [Recovered/Resolved]
  - Feeling abnormal [Unknown]
  - Pain [Unknown]
  - Diarrhoea [Unknown]
  - Anal sphincter atony [Unknown]
  - Hypersomnia [Unknown]
  - Fatigue [Unknown]
